FAERS Safety Report 4601486-X (Version None)
Quarter: 2005Q1

REPORT INFORMATION
  Report Type: 
  Country: None (occurrence: None)
  Receive Date: 20050307
  Receipt Date: 20050307
  Transmission Date: 20050727
  Serious: Yes (Hospitalization)
  Sender: FDA-Public Use
  Company Number: None

PATIENT
  Sex: Male
  Weight: 66.6788 kg

DRUGS (1)
  1. PHENYTOIN [Suspect]
     Dosage: 450 MG PO QHS [}1 MOS]
     Route: 048

REACTIONS (2)
  - COORDINATION ABNORMAL [None]
  - DIZZINESS [None]
